FAERS Safety Report 8110853-1 (Version None)
Quarter: 2012Q1

REPORT INFORMATION
  Report Type: 
  Country: None (occurrence: None)
  Receive Date: 20120203
  Receipt Date: 20120131
  Transmission Date: 20120608
  Serious: Yes (Hospitalization)
  Sender: FDA-Public Use
  Company Number: US-JNJFOC-20120200413

PATIENT
  Sex: Male
  Weight: 83.92 kg

DRUGS (2)
  1. XARELTO [Suspect]
     Indication: ATRIAL FIBRILLATION
     Route: 048
     Dates: start: 20120101
  2. SIMVASTATIN [Concomitant]
     Indication: ILL-DEFINED DISORDER
     Route: 048

REACTIONS (4)
  - ADVERSE EVENT [None]
  - RESPIRATORY TRACT CONGESTION [None]
  - ABNORMAL LOSS OF WEIGHT [None]
  - INCORRECT ROUTE OF DRUG ADMINISTRATION [None]
